FAERS Safety Report 20045944 (Version 6)
Quarter: 2022Q2

REPORT INFORMATION
  Report Type: Report from Study
  Country: NL (occurrence: NL)
  Receive Date: 20211108
  Receipt Date: 20220521
  Transmission Date: 20220720
  Serious: Yes (Death, Hospitalization)
  Sender: FDA-Public Use
  Company Number: NL-NOVARTISPH-NVSC2021NL251551

PATIENT
  Age: 82 Year
  Sex: Male

DRUGS (4)
  1. MIDOSTAURIN [Suspect]
     Active Substance: MIDOSTAURIN
     Indication: Acute myeloid leukaemia
     Dosage: 100 MG
     Route: 048
     Dates: start: 20211009, end: 20211101
  2. MIDOSTAURIN [Suspect]
     Active Substance: MIDOSTAURIN
     Indication: Myelodysplastic syndrome
     Dosage: 50 MG
     Route: 048
     Dates: start: 20220115, end: 20220204
  3. DECITABINE [Suspect]
     Active Substance: DECITABINE
     Indication: Acute myeloid leukaemia
     Dosage: 42 MG
     Route: 042
     Dates: start: 20210929, end: 20211008
  4. DECITABINE [Suspect]
     Active Substance: DECITABINE
     Indication: Myelodysplastic syndrome
     Dosage: 42 MG
     Route: 042
     Dates: start: 20220221, end: 20220223

REACTIONS (2)
  - Pneumonia [Recovered/Resolved]
  - Pneumonia [Fatal]

NARRATIVE: CASE EVENT DATE: 20211101
